FAERS Safety Report 4341495-1 (Version None)
Quarter: 2004Q2

REPORT INFORMATION
  Report Type: 
  Country: None (occurrence: None)
  Receive Date: 20040415
  Receipt Date: 20040329
  Transmission Date: 20050107
  Serious: Yes (Death)
  Sender: FDA-Public Use
  Company Number: USA-2003-0010721

PATIENT
  Age: 61 Year
  Sex: Female
  Weight: 59 kg

DRUGS (8)
  1. OXYCODONE HCL [Suspect]
     Indication: PAIN
  2. TRAZODONE HCL [Concomitant]
  3. TEMAZEPAM [Concomitant]
  4. MENEST ^MONARCH^ (ESTROGEN ESTERIFIED) [Concomitant]
  5. ATENOL (ATENOLOL) [Concomitant]
  6. PROPOXYPHENE HYDROCHLORIDE (DEXTROPROPOXYPHENE HYDROCHLORIDE) [Concomitant]
  7. DARVON [Concomitant]
  8. XANAX [Concomitant]

REACTIONS (1)
  - MYOCARDIAL INFARCTION [None]
